FAERS Safety Report 6551455-8 (Version None)
Quarter: 2010Q1

REPORT INFORMATION
  Report Type: 
  Country: None (occurrence: None)
  Receive Date: 20100126
  Receipt Date: 20100122
  Transmission Date: 20100710
  Serious: Yes (Death)
  Sender: FDA-Public Use
  Company Number: US-BRISTOL-MYERS SQUIBB COMPANY-14945059

PATIENT
  Age: 84 Year
  Sex: Male
  Weight: 63 kg

DRUGS (10)
  1. COUMADIN [Suspect]
     Dosage: 1 DF=2.5MG TWO DAYS A WEEK ALTERNATING WITH 1.25MG FIVE DAYS A WEEK INITIAL DOSE:2.5MG
     Dates: start: 19800101
  2. DUONEB [Concomitant]
  3. ALBUTEROL [Concomitant]
  4. LASIX [Concomitant]
  5. FLOVENT [Concomitant]
  6. ISOSORBIDE [Concomitant]
  7. METOPROLOL TARTRATE [Concomitant]
  8. SIMVASTATIN [Concomitant]
  9. LISINOPRIL [Concomitant]
  10. VITAMIN B-12 [Concomitant]

REACTIONS (1)
  - DYSPNOEA [None]
